FAERS Safety Report 8690404 (Version 2)
Quarter: 2012Q4

REPORT INFORMATION
  Report Type: 
  Country: US (occurrence: US)
  Receive Date: 20120727
  Receipt Date: 20121113
  Transmission Date: 20130627
  Serious: No
  Sender: FDA-Public Use
  Company Number: US-ASTRAZENECA-2012SE26550

PATIENT
  Age: 58 Year
  Sex: Female

DRUGS (2)
  1. SEROQUEL XR [Suspect]
     Route: 048
  2. CRESTOR [Suspect]
     Route: 048

REACTIONS (5)
  - Carpal tunnel syndrome [Unknown]
  - Disturbance in attention [Unknown]
  - Confusional state [Unknown]
  - Adverse drug reaction [Unknown]
  - Memory impairment [Unknown]
